FAERS Safety Report 17921800 (Version 3)
Quarter: 2020Q2

REPORT INFORMATION
  Report Type: Spontaneous
  Country: MX (occurrence: MX)
  Receive Date: 20200622
  Receipt Date: 20200630
  Transmission Date: 20200714
  Serious: Yes (Other)
  Sender: FDA-Public Use
  Company Number: MX-ALVOGEN-2020-ALVOGEN-108654

PATIENT
  Age: 67 Year
  Sex: Male
  Weight: 76 kg

DRUGS (12)
  1. TENORETIC [Suspect]
     Active Substance: ATENOLOL\CHLORTHALIDONE
     Indication: BLOOD PRESSURE ABNORMAL
     Dosage: ONE ORAL TABLET AT NIGHT
     Route: 048
  2. PANTOPRAZOLE [Concomitant]
     Active Substance: PANTOPRAZOLE
     Indication: ABDOMINAL DISCOMFORT
     Route: 048
  3. TAMSULOSIN HYDROCHLORIDE. [Concomitant]
     Active Substance: TAMSULOSIN HYDROCHLORIDE
     Indication: PROSTATE EXAMINATION ABNORMAL
     Dosage: 1 ORAL TABLET AT NIGHT
     Route: 048
  4. AMLODIPINE/VALSARTAN [Concomitant]
     Active Substance: AMLODIPINE\VALSARTAN
     Indication: BLOOD PRESSURE DECREASED
     Dosage: EXFORGE (320/5 MG) 1 TABLET IN THE MORNING AND 1/2 TABLET IN THE EVENING
     Route: 048
  5. RASILEZ [Concomitant]
     Active Substance: ALISKIREN
     Indication: PRODUCT USED FOR UNKNOWN INDICATION
     Dosage: 300.0MG UNKNOWN
     Route: 048
     Dates: start: 201408
  6. OMEPRAZOLE. [Concomitant]
     Active Substance: OMEPRAZOLE
     Indication: ABDOMINAL DISCOMFORT
     Dosage: 1 ORAL TABLET A DAY
     Route: 048
  7. EXFORGE [Concomitant]
     Active Substance: AMLODIPINE BESYLATE\VALSARTAN
     Indication: BLOOD PRESSURE DECREASED
     Dosage: 1 TABLET OF EXFORGE (320/10 MG)
     Route: 048
  8. AMBROXOL HYDROCHLORIDE [Concomitant]
     Active Substance: AMBROXOL HYDROCHLORIDE
     Indication: COUGH
     Route: 048
  9. SPIRONOLACTONE. [Concomitant]
     Active Substance: SPIRONOLACTONE
     Indication: BLOOD PRESSURE ABNORMAL
     Dosage: (100 MG) 1/2 ORAL TABLET IN THE MORNING
     Route: 048
     Dates: start: 201408
  10. DEFLAXACOR [Concomitant]
     Indication: BRONCHIAL DISORDER
     Dosage: (6 MG) 2 ORAL TABLETS IN THE MORNING AND 2 TABLETS IN THE EVENING
     Route: 048
  11. PARACETAMOL [Concomitant]
     Active Substance: ACETAMINOPHEN
     Indication: PRODUCT USED FOR UNKNOWN INDICATION
  12. EXFORGE [Concomitant]
     Active Substance: AMLODIPINE BESYLATE\VALSARTAN
     Indication: BLOOD PRESSURE DECREASED
     Dosage: (320/5 MG) 1 TABLET IN THE MORNING DAILY
     Route: 048

REACTIONS (11)
  - Renal cancer [Recovering/Resolving]
  - Bronchitis [Recovering/Resolving]
  - Colitis [Unknown]
  - Stress [Unknown]
  - Abdominal pain upper [Recovering/Resolving]
  - Cholelithiasis [Unknown]
  - Eye pain [Recovered/Resolved]
  - Calculus bladder [Unknown]
  - Allergic cough [Recovering/Resolving]
  - Blood pressure fluctuation [Unknown]
  - Gallbladder cancer [Unknown]

NARRATIVE: CASE EVENT DATE: 201902
